FAERS Safety Report 8486096-9 (Version None)
Quarter: 2012Q3

REPORT INFORMATION
  Report Type: 
  Country: None (occurrence: None)
  Receive Date: 20120703
  Receipt Date: 20120627
  Transmission Date: 20120928
  Serious: Yes (Hospitalization)
  Sender: FDA-Public Use
  Company Number: US-BAXTER-2012BAX008585

PATIENT
  Sex: Male

DRUGS (4)
  1. DIANEAL PD-2 W/ DEXTROSE 1.5% [Suspect]
     Indication: FLUID OVERLOAD
     Route: 033
  2. TOPROL-XL [Suspect]
     Route: 048
  3. DIANEAL PD-2 W/ DEXTROSE 1.5% [Suspect]
     Indication: PERITONEAL DIALYSIS
     Route: 033
  4. DIANEAL PD-2 W/ DEXTROSE 1.5% [Suspect]
     Indication: PERITONEAL DIALYSIS
     Route: 033

REACTIONS (3)
  - DEHYDRATION [None]
  - HYPOTENSION [None]
  - FLUID OVERLOAD [None]
